FAERS Safety Report 8461708-4 (Version None)
Quarter: 2012Q2

REPORT INFORMATION
  Report Type: 
  Country: None (occurrence: None)
  Receive Date: 20120625
  Receipt Date: 20120620
  Transmission Date: 20120825
  Serious: Yes (Hospitalization, Other)
  Sender: FDA-Public Use
  Company Number: PHHY2010JP36123

PATIENT
  Sex: Male
  Weight: 63 kg

DRUGS (25)
  1. TULOBUTEROL [Concomitant]
     Dosage: 2 MG, UNK
     Route: 062
     Dates: end: 20100105
  2. PRANLUKAST [Concomitant]
     Dosage: 450 MG, UNK
     Route: 048
     Dates: end: 20100105
  3. RED BLOOD CELLS, LEUCOCYTE DEPLETED [Concomitant]
     Dosage: 4 U, UNK
     Dates: start: 20091105
  4. LASIX [Concomitant]
     Dosage: 40 MG, UNK
     Route: 048
     Dates: start: 20090214
  5. LASIX [Concomitant]
     Dosage: 40 MG, UNK
     Route: 048
     Dates: end: 20100105
  6. RANITAC [Concomitant]
     Indication: PROPHYLAXIS
     Dosage: 300 MG, UNK
     Route: 048
     Dates: start: 20090812, end: 20090928
  7. MUCOSTA [Concomitant]
     Indication: PROPHYLAXIS
     Dosage: 300 MG, UNK
     Route: 048
     Dates: start: 20091112, end: 20091114
  8. EXJADE [Suspect]
     Indication: MYELODYSPLASTIC SYNDROME
     Dosage: 100 MG, DAILY
     Route: 048
     Dates: start: 20090623, end: 20090713
  9. EXJADE [Suspect]
     Dosage: 1000 MG, DAILY
     Route: 048
     Dates: start: 20091201, end: 20100105
  10. FLUTICASONE PROPIONATE [Concomitant]
     Dosage: 200 UG, UNK
     Dates: start: 20091229, end: 20100105
  11. EXJADE [Suspect]
     Indication: IRON OVERLOAD
     Dosage: 1000 MG, DAILY
     Route: 048
     Dates: start: 20090728, end: 20091105
  12. FLUTICASONE PROPIONATE [Concomitant]
     Dosage: 400 UG, UNK
     Dates: end: 20091229
  13. ENSURE [Concomitant]
     Indication: NUTRITIONAL SUPPORT
     Dosage: 500 ML, UNK
     Route: 048
     Dates: start: 20091124
  14. PRIMOBOLAN-DEPOT INJ [Concomitant]
     Indication: MYELODYSPLASTIC SYNDROME
     Dosage: 60 MG, UNK
     Route: 048
     Dates: start: 20090212, end: 20090810
  15. PRANLUKAST [Concomitant]
     Dosage: 450 MG, UNK
     Route: 048
  16. SPIRIVA [Concomitant]
     Dosage: 18 UG, UNK
  17. CLARITHROMYCIN [Concomitant]
     Dosage: 400 MG, UNK
     Route: 048
     Dates: start: 20090717, end: 20090723
  18. FRESH FROZEN PLASMA [Concomitant]
     Dosage: 4 U, UNK
     Dates: start: 20091105
  19. MEPTIN [Concomitant]
     Dosage: 10 UG, UNK
  20. RED BLOOD CELLS, LEUCOCYTE DEPLETED [Concomitant]
     Dosage: 2 U, UNK
     Dates: start: 20091124, end: 20091229
  21. TULOBUTEROL [Concomitant]
     Dosage: 2 MG, UNK
     Route: 062
  22. AMPICILLIN SODIUM/SULBACTAM SODIUM [Concomitant]
     Dosage: 3 G, UNK
     Dates: start: 20090714, end: 20090717
  23. ENSURE [Concomitant]
     Dosage: 500 ML, UNK
     Route: 048
     Dates: end: 20100105
  24. RED BLOOD CELLS, LEUCOCYTE DEPLETED [Concomitant]
     Dosage: 2 U, UNK
     Dates: start: 20090630, end: 20091027
  25. RED BLOOD CELLS, LEUCOCYTE DEPLETED [Concomitant]
     Dosage: 2 U, UNK
     Dates: start: 20091229, end: 20100105

REACTIONS (16)
  - PNEUMONIA [None]
  - MYELODYSPLASTIC SYNDROME [None]
  - SERUM FERRITIN INCREASED [None]
  - NASOPHARYNGITIS [None]
  - CHOLECYSTITIS ACUTE [None]
  - HEADACHE [None]
  - BLOOD LACTATE DEHYDROGENASE DECREASED [None]
  - WHITE BLOOD CELL COUNT INCREASED [None]
  - LYMPHOCYTE COUNT DECREASED [None]
  - BRONCHITIS [None]
  - NAUSEA [None]
  - NEOPLASM MALIGNANT [None]
  - BLOOD LACTATE DEHYDROGENASE INCREASED [None]
  - ABDOMINAL DISCOMFORT [None]
  - PYREXIA [None]
  - VOMITING [None]
